FAERS Safety Report 10051667 (Version 2)
Quarter: 2014Q2

REPORT INFORMATION
  Report Type: Spontaneous
  Country: US (occurrence: US)
  Receive Date: 20140401
  Receipt Date: 20140401
  Transmission Date: 20141212
  Serious: Yes (Disabling)
  Sender: FDA-Public Use
  Company Number: US-GE HEALTHCARE MEDICAL DIAGNOSTICS-OSCN-PR-1102S-0081

PATIENT
  Age: 64 Year
  Sex: Female

DRUGS (9)
  1. OMNISCAN [Suspect]
     Indication: BACK PAIN
     Route: 042
     Dates: start: 20050818, end: 20050818
  2. OMNISCAN [Suspect]
     Route: 042
     Dates: start: 20051101, end: 20051101
  3. OMNISCAN [Suspect]
     Route: 042
     Dates: start: 20051220, end: 20051220
  4. OMNISCAN [Suspect]
     Route: 042
     Dates: start: 20060202, end: 20060202
  5. OMNISCAN [Suspect]
     Route: 042
     Dates: start: 20060419, end: 20060419
  6. GADOLINIUM (UNSPECIFIED) [Suspect]
     Indication: BACK PAIN
     Route: 065
     Dates: start: 20060505, end: 20060505
  7. GADOLINIUM (UNSPECIFIED) [Suspect]
     Indication: LIMB DISCOMFORT
  8. GADOLINIUM (UNSPECIFIED) [Suspect]
     Indication: DIZZINESS
  9. GADOLINIUM (UNSPECIFIED) [Suspect]
     Indication: DYSARTHRIA

REACTIONS (1)
  - Nephrogenic systemic fibrosis [Not Recovered/Not Resolved]
